FAERS Safety Report 7115865-2 (Version None)
Quarter: 2010Q4

REPORT INFORMATION
  Report Type: 
  Country: None (occurrence: None)
  Receive Date: 20101122
  Receipt Date: 20101109
  Transmission Date: 20110411
  Serious: Yes (Hospitalization, Other)
  Sender: FDA-Public Use
  Company Number: US-ELI_LILLY_AND_COMPANY-US201006006812

PATIENT
  Sex: Female

DRUGS (21)
  1. FORTEO [Suspect]
     Indication: OSTEOPOROSIS
     Dosage: 20 UG, DAILY (1/D)
     Dates: start: 20100226, end: 20100614
  2. FORTEO [Suspect]
     Dosage: 20 UG, DAILY (1/D)
     Dates: start: 20100705
  3. FORTEO [Suspect]
     Dosage: 20 UG, DAILY (1/D)
  4. LUTEIN [Concomitant]
     Dosage: 20 MG, DAILY (1/D)
  5. SINGULAIR [Concomitant]
     Indication: ASTHMA
     Dosage: 10 MG, DAILY (1/D)
  6. CLARINEX [Concomitant]
     Dosage: 5 MG, DAILY (1/D)
  7. LOVAZA [Concomitant]
     Dosage: UNK, 2/D
  8. PATANOL [Concomitant]
     Indication: HYPERSENSITIVITY
     Route: 047
  9. HYDROCHLOROTHIAZIDE [Concomitant]
     Dosage: 25 MG, DAILY (1/D)
  10. ADVAIR DISKUS 100/50 [Concomitant]
     Dosage: UNK, 2/D
  11. FLONASE [Concomitant]
     Dosage: UNK, 2/D
  12. MULTI-VITAMIN [Concomitant]
     Dosage: UNK, DAILY (1/D)
  13. TYLENOL (CAPLET) [Concomitant]
     Indication: ARTHRITIS
     Dosage: UNK, 2/D
  14. CALCIUM [Concomitant]
     Dosage: 1200 MG, 2/D
  15. MACROBID [Concomitant]
  16. MIRALAX [Concomitant]
  17. PROVENTIL /00139501/ [Concomitant]
  18. VOLTAREN                                /SCH/ [Concomitant]
     Indication: ARTHRITIS
     Route: 061
  19. PRAVASTATIN [Concomitant]
  20. CYCLOBENZAPRINE [Concomitant]
  21. FEXOFENADINE [Concomitant]

REACTIONS (2)
  - CARCINOID TUMOUR PULMONARY [None]
  - INJECTION SITE PAIN [None]
